FAERS Safety Report 4516391-7 (Version None)
Quarter: 2004Q4

REPORT INFORMATION
  Report Type: 
  Country: None (occurrence: None)
  Receive Date: 20041202
  Receipt Date: 20041124
  Transmission Date: 20050328
  Serious: Yes (Other)
  Sender: FDA-Public Use
  Company Number: 200414416FR

PATIENT
  Age: 70 Year
  Sex: Female

DRUGS (1)
  1. FLAGYL [Suspect]
     Indication: SIGMOIDITIS
     Route: 048
     Dates: start: 20040815, end: 20041015

REACTIONS (1)
  - MELANODERMIA [None]
